FAERS Safety Report 8947888 (Version 2)
Quarter: 2012Q4

REPORT INFORMATION
  Report Type: 
  Country: RU (occurrence: RU)
  Receive Date: 20121204
  Receipt Date: 20121212
  Transmission Date: 20130627
  Serious: No
  Sender: FDA-Public Use
  Company Number: RU-PFIZER INC-2012298352

PATIENT
  Age: 76 Year
  Sex: Female

DRUGS (4)
  1. XALATAN [Suspect]
     Indication: GLAUCOMA
     Dosage: 1 drop in each eye, 1x/day
     Route: 047
  2. XALATAN [Suspect]
     Dosage: 1 drop once daily, 1x/day
     Route: 047
     Dates: start: 201211, end: 201211
  3. TOBRADEX [Concomitant]
     Indication: INFECTION PROPHYLAXIS
     Dosage: Unk
     Route: 047
  4. MAXITROL [Concomitant]
     Indication: INFECTION PROPHYLAXIS
     Dosage: UNK
     Route: 047

REACTIONS (1)
  - Conjunctival hyperaemia [Recovering/Resolving]
